FAERS Safety Report 7576254-X (Version None)
Quarter: 2011Q2

REPORT INFORMATION
  Report Type: 
  Country: None (occurrence: None)
  Receive Date: 20110628
  Receipt Date: 20101029
  Transmission Date: 20111010
  Serious: Yes (Other)
  Sender: FDA-Public Use
  Company Number: US-BAYER-201034239NA

PATIENT
  Age: 20 Year
  Sex: Female
  Weight: 68.027 kg

DRUGS (13)
  1. YAZ [Suspect]
     Indication: DYSMENORRHOEA
  2. YASMIN [Suspect]
     Indication: ACNE
  3. ASPIRIN [Concomitant]
     Dosage: 81 MG, QD
  4. YASMIN [Suspect]
     Indication: MENORRHAGIA
     Dosage: UNK
     Route: 048
     Dates: start: 20040101, end: 20040101
  5. BUTALBITAL [Concomitant]
     Dosage: UNK
     Dates: start: 20060101, end: 20090101
  6. YASMIN [Suspect]
     Indication: DYSMENORRHOEA
  7. ADVIL LIQUI-GELS [Concomitant]
     Dosage: UNK
     Dates: start: 20000101
  8. DIFFERIN [Concomitant]
     Route: 061
  9. YAZ [Suspect]
     Indication: ACNE
  10. MINOCYCLINE HCL [Concomitant]
     Dosage: UNK
     Dates: start: 20060101
  11. YAZ [Suspect]
     Indication: MENORRHAGIA
     Dosage: UNK
     Route: 048
     Dates: start: 20080901, end: 20081001
  12. MINOCYCLINE HCL [Concomitant]
     Indication: ACNE
     Dosage: UNK UNK, BID
     Dates: start: 20020101, end: 20090101
  13. ASPIRIN [Concomitant]
     Dosage: UNK UNK, QD
     Dates: start: 20080101

REACTIONS (4)
  - MOBILITY DECREASED [None]
  - CEREBROVASCULAR ACCIDENT [None]
  - APHASIA [None]
  - PAIN [None]
